FAERS Safety Report 4677821-3 (Version None)
Quarter: 2005Q2

REPORT INFORMATION
  Report Type: 
  Country: None (occurrence: None)
  Receive Date: 20050527
  Receipt Date: 20050527
  Transmission Date: 20051028
  Serious: No
  Sender: FDA-Public Use
  Company Number: None

PATIENT
  Sex: Female

DRUGS (2)
  1. BACTRIM [Suspect]
     Indication: FOLLICULITIS
     Dosage: 800/160 BID TABS
     Dates: start: 20050321, end: 20050331
  2. PLEXION TS (TOPICAL) [Concomitant]

REACTIONS (4)
  - ARTHRALGIA [None]
  - HEADACHE [None]
  - PHOTOSENSITIVITY REACTION [None]
  - URTICARIA [None]
